FAERS Safety Report 6518627-X (Version None)
Quarter: 2009Q4

REPORT INFORMATION
  Report Type: 
  Country: None (occurrence: None)
  Receive Date: 20091228
  Receipt Date: 20091221
  Transmission Date: 20100525
  Serious: Yes (Other)
  Sender: FDA-Public Use
  Company Number: US-ROCHE-575985

PATIENT
  Sex: Female

DRUGS (3)
  1. VALCYTE [Suspect]
     Indication: VIRAL INFECTION
     Dosage: DOSE: 2 TABLETS DAILY. STOPPED FOR 1-2 DAYS
     Route: 065
     Dates: start: 20080401
  2. VALCYTE [Suspect]
     Dosage: DOSE: ONE TABLET DAILY. STOPPED FOR A MINIMUM OF TWO WEEKS
     Route: 065
     Dates: end: 20080714
  3. VALCYTE [Suspect]
     Route: 065
     Dates: start: 20090129

REACTIONS (3)
  - MYELODYSPLASTIC SYNDROME [None]
  - NAUSEA [None]
  - PLATELET COUNT DECREASED [None]
